FAERS Safety Report 5386077-8 (Version None)
Quarter: 2007Q3

REPORT INFORMATION
  Report Type: 
  Country: None (occurrence: None)
  Receive Date: 20070710
  Receipt Date: 20070625
  Transmission Date: 20080115
  Serious: Yes (Death, Hospitalization)
  Sender: FDA-Public Use
  Company Number: 2007S1005828

PATIENT
  Age: 13 Year
  Sex: Female
  Weight: 43 kg

DRUGS (2)
  1. FENTANYL TRANSDERMAL SYSTEM [Suspect]
     Dosage: 25 UG/HR; EVERY 3 DAYS; TRANSDERMAL
     Route: 062
     Dates: start: 20070501
  2. CITALOPRAM HYDROCHLORIDE) [Concomitant]

REACTIONS (3)
  - ACUTE PULMONARY OEDEMA [None]
  - COLITIS [None]
  - OVERDOSE [None]
